FAERS Safety Report 8102257-2 (Version None)
Quarter: 2012Q1

REPORT INFORMATION
  Report Type: 
  Country: None (occurrence: None)
  Receive Date: 20120131
  Receipt Date: 20120131
  Transmission Date: 20120608
  Serious: Yes (Hospitalization)
  Sender: FDA-Public Use
  Company Number: None

PATIENT
  Age: 64 Year
  Sex: Male
  Weight: 79.9193 kg

DRUGS (11)
  1. DOCUSATE SODIUM [Concomitant]
  2. POTASSIUM CHLORIDE [Concomitant]
  3. IFOSFAMIDE [Suspect]
     Indication: LEIOMYOSARCOMA
     Dosage: 7.5 G/M2, 21 DAY INT, IV
     Route: 042
     Dates: start: 20120118
  4. CITALOPRAM HYDROBROMIDE [Concomitant]
  5. METOPROLOL TARTRATE [Concomitant]
  6. ONDANSETRON [Concomitant]
  7. ATIVAN [Concomitant]
  8. POLYETHYLENE GLYCOL [Concomitant]
  9. PROCHLORPERAZINE MALEATE [Concomitant]
  10. DOXORUBICIN HCL [Suspect]
     Dosage: 75 MG/M2, 21 DAY INT, IV
     Route: 042
     Dates: start: 20120118
  11. NEUTRA PHOS [Concomitant]

REACTIONS (6)
  - FATIGUE [None]
  - DEHYDRATION [None]
  - TACHYCARDIA [None]
  - HYPOPHOSPHATAEMIA [None]
  - HYPOKALAEMIA [None]
  - ASTHENIA [None]
